FAERS Safety Report 14632398 (Version 3)
Quarter: 2018Q1

REPORT INFORMATION
  Report Type: Spontaneous
  Country: RU (occurrence: RU)
  Receive Date: 20180313
  Receipt Date: 20180328
  Transmission Date: 20180509
  Serious: Yes (Hospitalization, Other)
  Sender: FDA-Public Use
  Company Number: RU-ASTRAZENECA-2018SE29626

PATIENT
  Age: 53 Year
  Sex: Female
  Weight: 86 kg

DRUGS (15)
  1. IPRATEROL [Concomitant]
  2. OMEPRAZOLE. [Concomitant]
     Active Substance: OMEPRAZOLE
  3. PANCREATIN [Concomitant]
     Active Substance: PANCRELIPASE
  4. INSULIN [Concomitant]
     Active Substance: INSULIN NOS
  5. BERLITHION [Concomitant]
  6. FORXIGA [Suspect]
     Active Substance: DAPAGLIFLOZIN
     Indication: TYPE 2 DIABETES MELLITUS
     Route: 048
     Dates: start: 201708, end: 201801
  7. METYPRED [Concomitant]
     Active Substance: METHYLPREDNISOLONE
  8. ZOLEDRONIC ACID [Concomitant]
     Active Substance: ZOLEDRONIC ACID
  9. DETRALEX [Concomitant]
     Active Substance: DIOSMIN\HESPERIDIN
  10. METHOTREXATE. [Concomitant]
     Active Substance: METHOTREXATE
  11. SPIRIVA [Concomitant]
     Active Substance: TIOTROPIUM BROMIDE MONOHYDRATE
  12. NOLICIN [Concomitant]
  13. VEROSPIRON [Concomitant]
     Active Substance: SPIRONOLACTONE
  14. KETOSTERIL [Concomitant]
     Active Substance: AMINO ACIDS
  15. MILDRONATE [Concomitant]
     Active Substance: MELDONIUM

REACTIONS (6)
  - Chronic kidney disease [Not Recovered/Not Resolved]
  - Blood glucose increased [Unknown]
  - Renal failure [Unknown]
  - Nephritis [Unknown]
  - Thrombosis [Unknown]
  - Renal impairment [Unknown]

NARRATIVE: CASE EVENT DATE: 201708
